FAERS Safety Report 5077891-7 (Version None)
Quarter: 2006Q3

REPORT INFORMATION
  Report Type: 
  Country: None (occurrence: None)
  Receive Date: 20060720
  Receipt Date: 20050822
  Transmission Date: 20061208
  Serious: Yes (Other)
  Sender: FDA-Public Use
  Company Number: 05USA0176

PATIENT
  Sex: Male
  Weight: 80 kg

DRUGS (1)
  1. AGGRASTAT [Suspect]
     Indication: ACUTE CORONARY SYNDROME
     Dosage: 12.5 MG
     Dates: start: 20050819, end: 20050819

REACTIONS (1)
  - ACCIDENTAL OVERDOSE [None]
